FAERS Safety Report 9690031 (Version 1)
Quarter: 2013Q4

REPORT INFORMATION
  Report Type: Report from Study
  Country: CA (occurrence: CA)
  Receive Date: 20131115
  Receipt Date: 20131115
  Transmission Date: 20140711
  Serious: Yes (Other)
  Sender: FDA-Public Use
  Company Number: CA-JNJFOC-20131107853

PATIENT
  Sex: Female
  Weight: 110 kg

DRUGS (6)
  1. REMICADE [Suspect]
     Indication: CROHN^S DISEASE
     Dosage: INFUSION NUMBER 18
     Route: 042
     Dates: start: 20131108
  2. REMICADE [Suspect]
     Indication: CROHN^S DISEASE
     Route: 042
     Dates: start: 20110516
  3. METHOTREXATE [Concomitant]
     Route: 065
  4. FOLIC ACID [Concomitant]
     Route: 065
  5. ALESSE [Concomitant]
     Route: 065
  6. OLESTYR [Concomitant]
     Route: 065

REACTIONS (1)
  - Melanocytic naevus [Recovering/Resolving]
